FAERS Safety Report 22870006 (Version 3)
Quarter: 2023Q4

REPORT INFORMATION
  Report Type: Spontaneous
  Country: IT (occurrence: IT)
  Receive Date: 20230826
  Receipt Date: 20231211
  Transmission Date: 20240110
  Serious: Yes (Other)
  Sender: FDA-Public Use
  Company Number: IT-BAUSCHBL-2023BNL006568

PATIENT
  Age: 58 Year
  Sex: Male

DRUGS (15)
  1. BIMATOPROST [Suspect]
     Active Substance: BIMATOPROST
     Indication: Open angle glaucoma
     Dosage: 2 DROP IN THE EVENING (DROP (1/12 MILLILITRE)
     Route: 065
  2. BIMATOPROST [Suspect]
     Active Substance: BIMATOPROST
     Dosage: 2 DROPS IN THE EVENING
     Route: 065
  3. BRIMONIDINE TARTRATE\TIMOLOL MALEATE [Suspect]
     Active Substance: BRIMONIDINE TARTRATE\TIMOLOL MALEATE
     Indication: Open angle glaucoma
     Dosage: 2 DROP
     Route: 065
  4. BRIMONIDINE TARTRATE\TIMOLOL MALEATE [Suspect]
     Active Substance: BRIMONIDINE TARTRATE\TIMOLOL MALEATE
     Dosage: TIMOLOL 5 MG/ML + BRIMONIDINE 2 MG/ML
     Route: 065
  5. DICLOFENAC SODIUM [Suspect]
     Active Substance: DICLOFENAC\DICLOFENAC SODIUM
     Indication: Open angle glaucoma
     Dosage: 2 DROP IN THE EVENING (DROP (1/12 MILLILITRE)
     Route: 065
  6. DICLOFENAC SODIUM [Suspect]
     Active Substance: DICLOFENAC\DICLOFENAC SODIUM
     Dosage: 2 DRP, Q8H
     Route: 047
  7. DICLOFENAC SODIUM [Suspect]
     Active Substance: DICLOFENAC\DICLOFENAC SODIUM
     Dosage: 2 DRP, Q8H
     Route: 065
  8. GANCICLOVIR [Suspect]
     Active Substance: GANCICLOVIR
     Dosage: 1 DRP, Q8H
     Route: 047
  9. GANCICLOVIR [Suspect]
     Active Substance: GANCICLOVIR
     Indication: Open angle glaucoma
     Dosage: 1 DRP, Q8H
     Route: 065
  10. OFLOXACIN [Suspect]
     Active Substance: OFLOXACIN
     Indication: Open angle glaucoma
     Dosage: 2 DRP, Q4H
     Route: 065
  11. OLOPATADINE [Suspect]
     Active Substance: OLOPATADINE
     Indication: Open angle glaucoma
     Dosage: 2 DRP, Q12H
     Route: 065
  12. OLOPATADINE [Suspect]
     Active Substance: OLOPATADINE
     Dosage: 2 DRP, Q12H
     Route: 065
  13. SODIUM HYALURONATE [Suspect]
     Active Substance: HYALURONATE SODIUM
     Dosage: 2 DRP, Q4H
     Route: 047
  14. SODIUM HYALURONATE [Suspect]
     Active Substance: HYALURONATE SODIUM
     Indication: Open angle glaucoma
     Dosage: 2 DRP, Q4H
     Route: 065
  15. SODIUM HYALURONATE [Suspect]
     Active Substance: HYALURONATE SODIUM
     Dosage: 2 DRP, Q4H
     Route: 065

REACTIONS (5)
  - Ulcerative keratitis [Recovering/Resolving]
  - Meibomian gland dysfunction [Recovering/Resolving]
  - Eye inflammation [Recovering/Resolving]
  - Condition aggravated [Recovering/Resolving]
  - Dry eye [Recovering/Resolving]
